FAERS Safety Report 14937798 (Version 2)
Quarter: 2018Q2

REPORT INFORMATION
  Report Type: Report from Study
  Country: US (occurrence: US)
  Receive Date: 20180525
  Receipt Date: 20180621
  Transmission Date: 20180711
  Serious: Yes (Hospitalization, Other)
  Sender: FDA-Public Use
  Company Number: US-GILEAD-2018-0340219

PATIENT
  Age: 65 Year
  Sex: Female
  Weight: 51.7 kg

DRUGS (1)
  1. AMBRISENTAN [Suspect]
     Active Substance: AMBRISENTAN
     Indication: PULMONARY ARTERIAL HYPERTENSION
     Dosage: 5 MG, QD
     Route: 065
     Dates: start: 20160119

REACTIONS (3)
  - Cardiac failure congestive [Recovered/Resolved]
  - Pericardial effusion [Unknown]
  - Fluid retention [Unknown]
